FAERS Safety Report 7864262-0 (Version None)
Quarter: 2011Q4

REPORT INFORMATION
  Report Type: 
  Country: None (occurrence: None)
  Receive Date: 20111028
  Receipt Date: 20111018
  Transmission Date: 20120403
  Serious: Yes (Other)
  Sender: FDA-Public Use
  Company Number: US-BAYER-2011-031960

PATIENT
  Age: 27 Year
  Sex: Female
  Weight: 72.562 kg

DRUGS (10)
  1. PROMETHAZINE [Concomitant]
     Dosage: 25 MG, UNK
     Route: 048
     Dates: start: 20090505
  2. CEPHALEXIN [Concomitant]
     Dosage: 500 MG, UNK
     Route: 048
     Dates: start: 20090716
  3. BENICAR [Concomitant]
     Dosage: 20 MG, UNK
     Route: 048
     Dates: start: 20090716
  4. YAZ [Suspect]
     Indication: CONTRACEPTION
     Dosage: UNK
     Dates: start: 20061201, end: 20090901
  5. IBUPROFEN [Concomitant]
     Dosage: 800 MG, UNK
     Route: 048
     Dates: start: 20090603
  6. ALPRAZOLAM [Concomitant]
     Dosage: 1 MG, UNK
     Route: 048
     Dates: start: 20090603
  7. CEPHADYN [Concomitant]
     Dosage: 30 UNK, UNK
     Route: 048
     Dates: start: 20090505
  8. CITALOPRAM HYDROBROMIDE [Concomitant]
     Dosage: 20 MG, UNK
     Route: 048
     Dates: start: 20090603
  9. DOLGIC PLUS [Concomitant]
     Dosage: UNK
     Route: 048
     Dates: start: 20090716
  10. NEXIUM [Concomitant]
     Dosage: 40 MG, UNK
     Route: 048
     Dates: start: 20090505

REACTIONS (5)
  - PAIN [None]
  - BILIARY DYSKINESIA [None]
  - GALLBLADDER DISORDER [None]
  - CHOLECYSTITIS CHRONIC [None]
  - INJURY [None]
